FAERS Safety Report 4972108-3 (Version None)
Quarter: 2006Q2

REPORT INFORMATION
  Report Type: 
  Country: None (occurrence: None)
  Receive Date: 20060412
  Receipt Date: 20060412
  Transmission Date: 20061013
  Serious: Yes (Other)
  Sender: FDA-Public Use
  Company Number: None

PATIENT
  Age: 50 Year
  Sex: Female
  Weight: 81.6475 kg

DRUGS (3)
  1. VIOXX [Suspect]
     Indication: ANTIINFLAMMATORY THERAPY
     Dosage: 1 - 2 TABS DAILY PO
     Route: 048
     Dates: start: 19980701, end: 20001231
  2. VIOXX [Suspect]
     Indication: ARTHRITIS
     Dosage: 1 - 2 TABS DAILY PO
     Route: 048
     Dates: start: 19980701, end: 20001231
  3. VIOXX [Suspect]
     Indication: SURGERY
     Dosage: 1 - 2 TABS DAILY PO
     Route: 048
     Dates: start: 19980701, end: 20001231

REACTIONS (3)
  - ABDOMINAL PAIN UPPER [None]
  - DIARRHOEA [None]
  - NAUSEA [None]
